FAERS Safety Report 13365541 (Version 1)
Quarter: 2017Q1

REPORT INFORMATION
  Report Type: Spontaneous
  Country: US (occurrence: US)
  Receive Date: 20170323
  Receipt Date: 20170323
  Transmission Date: 20170429
  Serious: Yes (Other)
  Sender: FDA-Public Use
  Company Number: US-WARNER CHILCOTT-2016-000900

PATIENT
  Age: 93 Year
  Sex: Female

DRUGS (2)
  1. ALL OTHER THERAPEUTIC PRODUCTS [Concomitant]
     Active Substance: UNSPECIFIED INGREDIENT
     Dosage: UNKNOWN
     Route: 065
  2. ESTRACE [Suspect]
     Active Substance: ESTRADIOL
     Dosage: ONCE WEEKLYFOR SEVERAL YEARS
     Route: 067

REACTIONS (4)
  - Hydrometra [Not Recovered/Not Resolved]
  - Gastrointestinal pain [Unknown]
  - Gastrointestinal disorder [Unknown]
  - Uterine neoplasm [Not Recovered/Not Resolved]
